FAERS Safety Report 8578410-0 (Version None)
Quarter: 2012Q3

REPORT INFORMATION
  Report Type: 
  Country: None (occurrence: None)
  Receive Date: 20120808
  Receipt Date: 20120730
  Transmission Date: 20120928
  Serious: Yes (Other)
  Sender: FDA-Public Use
  Company Number: US-RB-043079-12

PATIENT
  Age: 16 Year
  Sex: Female

DRUGS (1)
  1. MUCINEX DM [Suspect]
     Indication: DRUG ABUSE
     Dosage: 7 TABLETS IN ONE SITTING AND 4 MORE TABLETS 5 HOURS AFTER
     Route: 048
     Dates: start: 20120729

REACTIONS (3)
  - INTENTIONAL OVERDOSE [None]
  - NO ADVERSE EVENT [None]
  - DRUG ABUSE [None]
